FAERS Safety Report 24189315 (Version 5)
Quarter: 2025Q3

REPORT INFORMATION
  Report Type: Report from Study
  Country: JP (occurrence: JP)
  Receive Date: 20240808
  Receipt Date: 20250810
  Transmission Date: 20251021
  Serious: Yes (Hospitalization, Other)
  Sender: ALEXION PHARMACEUTICALS
  Company Number: 2024A174933

PATIENT
  Age: 63 Year
  Sex: Male
  Weight: 80 kg

DRUGS (4)
  1. DURVALUMAB [Suspect]
     Active Substance: DURVALUMAB
     Indication: Hepatocellular carcinoma
     Dates: start: 20230413, end: 20230511
  2. TREMELIMUMAB [Suspect]
     Active Substance: TREMELIMUMAB
     Dates: start: 20230413, end: 20230413
  3. DURVALUMAB [Suspect]
     Active Substance: DURVALUMAB
     Dates: start: 20230413, end: 20230511
  4. TREMELIMUMAB [Suspect]
     Active Substance: TREMELIMUMAB

REACTIONS (1)
  - Immune-mediated hepatic disorder [Recovering/Resolving]

NARRATIVE: CASE EVENT DATE: 20230617
